FAERS Safety Report 9816317 (Version 3)
Quarter: 2014Q1

REPORT INFORMATION
  Report Type: Spontaneous
  Country: CA (occurrence: CA)
  Receive Date: 20140114
  Receipt Date: 20140203
  Transmission Date: 20141002
  Serious: Yes (Hospitalization, Other)
  Sender: FDA-Public Use
  Company Number: CA-BAXTER-2014BAX000147

PATIENT
  Age: 42 Year
  Sex: Female

DRUGS (3)
  1. DIANEAL PD4 SOLUTION WITH 1.5% DEXTROSE AND 2.5 MEQ/L CALCIUM [Suspect]
     Indication: NEPHROPATHY
     Route: 033
     Dates: start: 201302
  2. DIANEAL PD4 SOLUTION WITH 2.5% DEXTROSE AND 2.5 MEQ/L CALCIUM [Suspect]
     Indication: NEPHROPATHY
     Route: 033
     Dates: start: 201302
  3. EXTRANEAL [Suspect]
     Indication: NEPHROPATHY
     Route: 033
     Dates: start: 201302

REACTIONS (7)
  - Sepsis [Not Recovered/Not Resolved]
  - Diabetic complication [Not Recovered/Not Resolved]
  - Diabetic foot infection [Recovered/Resolved]
  - Localised infection [Recovered/Resolved]
  - Septic shock [Not Recovered/Not Resolved]
  - Diabetes mellitus [Unknown]
  - Postoperative wound infection [Not Recovered/Not Resolved]
